FAERS Safety Report 8614554 (Version 2)
Quarter: 2013Q1

REPORT INFORMATION
  Report Type: Report from Study
  Country: DE (occurrence: DE)
  Receive Date: 20120614
  Receipt Date: 20130122
  Transmission Date: 20140127
  Serious: Yes (Other)
  Sender: FDA-Public Use
  Company Number: DE-ROCHE-1050186

PATIENT
  Age: 72 Year
  Sex: Male
  Weight: 77 kg

DRUGS (11)
  1. TOCILIZUMAB [Suspect]
     Indication: POLYARTHRITIS
     Route: 042
     Dates: start: 20111130
  2. TOCILIZUMAB [Suspect]
     Indication: RHEUMATOID ARTHRITIS
     Route: 042
     Dates: start: 20111221
  3. TOCILIZUMAB [Suspect]
     Route: 042
     Dates: start: 20120125
  4. TOCILIZUMAB [Suspect]
     Route: 042
     Dates: start: 20120227
  5. METHOTREXATE [Concomitant]
     Indication: RHEUMATOID ARTHRITIS
     Route: 048
  6. NOVAMINSULFON [Concomitant]
     Route: 048
  7. PREDNISOLONE [Concomitant]
     Indication: RHEUMATOID ARTHRITIS
     Route: 048
  8. ALENDRONAT [Concomitant]
     Route: 065
  9. MARCUMAR [Concomitant]
     Route: 065
  10. OSTEOPLUS (GERMANY) [Concomitant]
     Route: 048
  11. FOLIC ACID [Concomitant]
     Route: 065

REACTIONS (6)
  - Chest discomfort [Recovering/Resolving]
  - Rhinitis [Recovered/Resolved]
  - Vertigo [Recovered/Resolved]
  - Oral herpes [Recovered/Resolved]
  - Hypercholesterolaemia [Not Recovered/Not Resolved]
  - Conjunctivitis [Recovered/Resolved]
